APPROVED DRUG PRODUCT: EPINEPHRINE
Active Ingredient: EPINEPHRINE
Strength: 10MG/10ML (1MG/ML)
Dosage Form/Route: SOLUTION;INTRAMUSCULAR, INTRAVENOUS, SUBCUTANEOUS
Application: N205029 | Product #002 | TE Code: AP
Applicant: BPI LABS LLC
Approved: Feb 4, 2022 | RLD: Yes | RS: Yes | Type: RX